FAERS Safety Report 25413903 (Version 1)
Quarter: 2025Q2

REPORT INFORMATION
  Report Type: Spontaneous
  Country: US (occurrence: None)
  Receive Date: 20250608
  Receipt Date: 20250608
  Transmission Date: 20250716
  Serious: Yes (Disabling, Other)
  Sender: FDA-CTU
  Company Number: None

PATIENT
  Age: 55 Year
  Sex: Female
  Weight: 90 kg

DRUGS (9)
  1. BUPROPION HYDROCHLORIDE [Suspect]
     Active Substance: BUPROPION HYDROCHLORIDE
     Indication: Depression
     Route: 048
     Dates: start: 20250523, end: 20250602
  2. ENBREL [Concomitant]
     Active Substance: ETANERCEPT
  3. PRAMIPEXOLE [Concomitant]
     Active Substance: PRAMIPEXOLE
  4. LEVOTHYROXINE [Concomitant]
     Active Substance: LEVOTHYROXINE
  5. QUETIAPINE [Concomitant]
     Active Substance: QUETIAPINE
  6. TIZANIDINE [Concomitant]
     Active Substance: TIZANIDINE
  7. Guaifensin Long-Acting [Concomitant]
  8. CALCIUM CITRATE\VITAMIN D [Concomitant]
     Active Substance: CALCIUM CITRATE\VITAMIN D
  9. VITAMIN D [Concomitant]
     Active Substance: VITAMIN D NOS

REACTIONS (14)
  - Arthralgia [None]
  - Neck pain [None]
  - Back pain [None]
  - Chest pain [None]
  - Pain in jaw [None]
  - Throat tightness [None]
  - Nausea [None]
  - Dysphagia [None]
  - Retching [None]
  - Inappropriate affect [None]
  - Eye swelling [None]
  - Influenza like illness [None]
  - Arthralgia [None]
  - Drug withdrawal syndrome [None]

NARRATIVE: CASE EVENT DATE: 20250602
